FAERS Safety Report 12810447 (Version 1)
Quarter: 2016Q4

REPORT INFORMATION
  Report Type: Report from Study
  Country: JP (occurrence: JP)
  Receive Date: 20161005
  Receipt Date: 20161005
  Transmission Date: 20170207
  Serious: Yes (Hospitalization)
  Sender: FDA-Public Use
  Company Number: JP-ELI_LILLY_AND_COMPANY-JP201607007422

PATIENT
  Age: 69 Year
  Sex: Male
  Weight: 58.8 kg

DRUGS (21)
  1. PACLITAXEL. [Suspect]
     Active Substance: PACLITAXEL
     Dosage: 175 MG/M2, DAY 1 OF 21-DAY CYCLE
     Route: 042
     Dates: start: 20160512, end: 20160602
  2. REBAMIPIDE [Concomitant]
     Active Substance: REBAMIPIDE
     Indication: GASTRITIS PROPHYLAXIS
     Dosage: 100 MG, TID
     Route: 048
     Dates: start: 20151228
  3. EMEND [Concomitant]
     Active Substance: APREPITANT
     Indication: PROPHYLAXIS
     Dosage: 80-125 MG, EVERY CHEMOTHERAPY
     Route: 048
     Dates: start: 20160204
  4. LYRICA [Concomitant]
     Active Substance: PREGABALIN
     Indication: PERIPHERAL SENSORY NEUROPATHY
     Dosage: 75 MG, QD, 2 IN 1 D
     Route: 048
     Dates: start: 20160623
  5. CALONAL [Concomitant]
     Active Substance: ACETAMINOPHEN
     Indication: PERIPHERAL SENSORY NEUROPATHY
     Dosage: 500 MG, QD, 3 IN 1 D
     Route: 048
  6. ULTIBRO [Concomitant]
     Active Substance: GLYCOPYRRONIUM\INDACATEROL
     Indication: CHRONIC OBSTRUCTIVE PULMONARY DISEASE
     Dosage: 1 DF, QD
     Route: 055
     Dates: start: 20150209
  7. CRESTOR [Concomitant]
     Active Substance: ROSUVASTATIN CALCIUM
     Indication: HYPERLIPIDAEMIA
     Dosage: 2.5 MG, QD
     Route: 048
     Dates: start: 2012
  8. MEPTIN [Concomitant]
     Active Substance: PROCATEROL HYDROCHLORIDE
     Indication: ASTHMA
     Dosage: 2 DF, PRN
     Route: 055
     Dates: start: 20150209
  9. ALOXI [Concomitant]
     Active Substance: PALONOSETRON HYDROCHLORIDE
     Indication: PROPHYLAXIS
     Dosage: 0.75 MG, EVERY CHEMOTHERAPY
     Route: 042
     Dates: start: 20160204
  10. PEMETREXED [Suspect]
     Active Substance: PEMETREXED
     Indication: NON-SMALL CELL LUNG CANCER
     Dosage: 200 MG/M2, UNKNOWN
     Route: 042
     Dates: start: 20160630
  11. CARBOPLATIN. [Suspect]
     Active Substance: CARBOPLATIN
     Indication: NON-SMALL CELL LUNG CANCER
     Dosage: AUC 6, DAY 1 OF 21-DAY CYCLE
     Route: 042
     Dates: start: 20160204, end: 20160602
  12. AMLODIPINE [Concomitant]
     Active Substance: AMLODIPINE BESYLATE
     Indication: HYPERTENSION
     Dosage: 2.5 MG, QD
     Route: 048
     Dates: start: 2012
  13. TAKEDA KANPO [Concomitant]
     Indication: CONSTIPATION
     Dosage: 1 DF, PRN
     Route: 048
     Dates: start: 201510
  14. VENA                               /00000402/ [Concomitant]
     Indication: PROPHYLAXIS
     Dosage: 50 MG, EVERY CHEMOTHERAPY
     Route: 042
     Dates: start: 20160204
  15. GASTER [Concomitant]
     Active Substance: FAMOTIDINE
     Indication: PROPHYLAXIS
     Dosage: 20 MG, EVERY CHEMOTHERAPY
     Route: 042
     Dates: start: 20160204
  16. DEXART [Concomitant]
     Active Substance: DEXAMETHASONE SODIUM PHOSPHATE
     Indication: PROPHYLAXIS
     Dosage: 3.3-8.25 MG, EVERY CHEMOTHERAPY
     Route: 042
     Dates: start: 20160204
  17. DECADRON [Concomitant]
     Active Substance: DEXAMETHASONE
     Indication: PROPHYLAXIS
     Dosage: 4 MG, EVERY CHEMOTHERAPY
     Route: 048
     Dates: start: 20160205
  18. ASMANEX [Concomitant]
     Active Substance: MOMETASONE FUROATE
     Indication: ASTHMA
     Dosage: 2 DF, QD
     Route: 055
     Dates: start: 20150209
  19. PACLITAXEL. [Suspect]
     Active Substance: PACLITAXEL
     Indication: NON-SMALL CELL LUNG CANCER
     Dosage: 200 MG/M2, DAY 1 OF 21-DAY CYCLE
     Route: 042
     Dates: start: 20160204, end: 20160414
  20. BROTIZOLAM [Concomitant]
     Active Substance: BROTIZOLAM
     Indication: INSOMNIA
     Dosage: 0.25 MG, PRN
     Route: 048
     Dates: start: 20160630
  21. NEXIUM [Concomitant]
     Active Substance: ESOMEPRAZOLE MAGNESIUM
     Indication: GASTRITIS
     Dosage: 20 MG, QD, 1 IN 1 D
     Route: 048
     Dates: start: 20160512

REACTIONS (2)
  - Haemoptysis [Recovered/Resolved]
  - Organising pneumonia [Unknown]

NARRATIVE: CASE EVENT DATE: 20160706
